FAERS Safety Report 6032020-8 (Version None)
Quarter: 2009Q1

REPORT INFORMATION
  Report Type: 
  Country: None (occurrence: None)
  Receive Date: 20090108
  Receipt Date: 20090107
  Transmission Date: 20090719
  Serious: Yes (Life-Threatening, Other)
  Sender: FDA-Public Use
  Company Number: PHHY2008BR31656

PATIENT
  Sex: Male
  Weight: 116 kg

DRUGS (4)
  1. SANDOSTATIN LAR [Suspect]
     Indication: PITUITARY TUMOUR
     Dosage: 20 MG, UNK
  2. SANDOSTATIN LAR [Suspect]
     Dosage: 30 MG, QMO
  3. BENICAR [Concomitant]
     Indication: BLOOD PRESSURE INCREASED
     Dosage: 40 MG, QD
     Route: 048
  4. AMLODIPINE [Concomitant]
     Indication: BLOOD PRESSURE INCREASED
     Dosage: 10 MG/DAY
     Route: 048
     Dates: start: 20040101

REACTIONS (11)
  - ABDOMINAL DISCOMFORT [None]
  - ABDOMINAL PAIN [None]
  - CHOLECYSTECTOMY [None]
  - CHOLELITHIASIS [None]
  - DRUG INEFFECTIVE [None]
  - DYSENTERY [None]
  - INSULIN-LIKE GROWTH FACTOR INCREASED [None]
  - NEOPLASM [None]
  - NEOPLASM PROGRESSION [None]
  - TUMOUR EXCISION [None]
  - WEIGHT DECREASED [None]
